FAERS Safety Report 24257855 (Version 1)
Quarter: 2024Q3

REPORT INFORMATION
  Report Type: Spontaneous
  Country: SK (occurrence: SK)
  Receive Date: 20240828
  Receipt Date: 20240828
  Transmission Date: 20241016
  Serious: Yes (Death, Life-Threatening, Hospitalization, Other)
  Sender: Steriscience PTE
  Company Number: SK-STERISCIENCE B.V.-2024-ST-001232

PATIENT
  Age: 27 Year
  Sex: Male

DRUGS (4)
  1. VANCOMYCIN [Suspect]
     Active Substance: VANCOMYCIN
     Indication: Endocarditis
     Dosage: 1 GRAM, Q8H
     Route: 042
  2. VANCOMYCIN [Suspect]
     Active Substance: VANCOMYCIN
     Indication: Serratia infection
  3. GENTAMICIN [Suspect]
     Active Substance: GENTAMICIN
     Indication: Endocarditis
     Dosage: 320 MILLIGRAM, QD
     Route: 042
  4. GENTAMICIN [Suspect]
     Active Substance: GENTAMICIN
     Indication: Serratia infection

REACTIONS (1)
  - Drug ineffective [Fatal]
